FAERS Safety Report 7889984-7 (Version None)
Quarter: 2011Q4

REPORT INFORMATION
  Report Type: 
  Country: None (occurrence: None)
  Receive Date: 20111103
  Receipt Date: 20111025
  Transmission Date: 20120403
  Serious: Yes (Other)
  Sender: FDA-Public Use
  Company Number: US-ASTRAZENECA-2011SE64793

PATIENT
  Sex: Female

DRUGS (5)
  1. TOPROL-XL [Suspect]
     Route: 048
  2. PULMICORT FLEXHALER [Suspect]
     Route: 055
  3. CRESTOR [Suspect]
     Route: 048
  4. SYMBICORT [Suspect]
     Route: 055
  5. OMEPRAZOLE [Suspect]
     Route: 048

REACTIONS (2)
  - RENAL FAILURE [None]
  - DIABETES MELLITUS [None]
